FAERS Safety Report 7109110-1 (Version None)
Quarter: 2010Q4

REPORT INFORMATION
  Report Type: 
  Country: None (occurrence: None)
  Receive Date: 20101117
  Receipt Date: 20101101
  Transmission Date: 20110411
  Serious: Yes (Other)
  Sender: FDA-Public Use
  Company Number: PHHY2010US74365

PATIENT
  Sex: Female

DRUGS (17)
  1. RECLAST [Suspect]
     Dosage: UNK
     Dates: start: 20101016
  2. HYDROCODONE [Concomitant]
  3. TIZANIDINE HCL [Concomitant]
  4. PREDNISONE [Concomitant]
  5. ORENCIA [Concomitant]
  6. DENLAFAXINE [Concomitant]
  7. LUNESTA [Concomitant]
  8. SYNTHROID [Concomitant]
  9. ABILIFY [Concomitant]
  10. VYTORIN [Concomitant]
  11. METOPROLOL [Concomitant]
  12. TRICOR [Concomitant]
  13. FISH OIL [Concomitant]
  14. POTASSIUM CHLORIDE [Concomitant]
  15. MULTI-VITAMIN [Concomitant]
  16. CALCIUM [Concomitant]
  17. VITAMIN D3 [Concomitant]

REACTIONS (11)
  - ARTHRALGIA [None]
  - BLOOD CREATINE ABNORMAL [None]
  - CHILLS [None]
  - DIZZINESS [None]
  - FEELING COLD [None]
  - LIGAMENT RUPTURE [None]
  - LIVER FUNCTION TEST ABNORMAL [None]
  - MOBILITY DECREASED [None]
  - MUSCLE RUPTURE [None]
  - MUSCLE SPASMS [None]
  - NAUSEA [None]
